FAERS Safety Report 11375992 (Version 1)
Quarter: 2015Q3

REPORT INFORMATION
  Report Type: Spontaneous
  Country: JP (occurrence: JP)
  Receive Date: 20150813
  Receipt Date: 20150813
  Transmission Date: 20151125
  Serious: Yes (Death, Other)
  Sender: FDA-Public Use
  Company Number: JP-TEVA-585083ISR

PATIENT
  Age: 53 Year
  Sex: Female
  Weight: 33 kg

DRUGS (14)
  1. E-FEN BUCCAL [Suspect]
     Active Substance: FENTANYL CITRATE
     Indication: BREAKTHROUGH PAIN
     Dosage: 200 MICROGRAM DAILY;
     Route: 002
     Dates: start: 20141007, end: 20141007
  2. MORPHINE HYDROCHLORIDE HYDRATE [Concomitant]
     Active Substance: MORPHINE HYDROCHLORIDE
     Indication: CANCER PAIN
     Dosage: 40 MILLIGRAM DAILY;
     Route: 042
     Dates: start: 20141003, end: 20141008
  3. DICLOFENAC SODIUM. [Concomitant]
     Active Substance: DICLOFENAC SODIUM
     Indication: CANCER PAIN
     Dosage: 50 MILLIGRAM DAILY;
     Route: 054
  4. LACTULOSE. [Concomitant]
     Active Substance: LACTULOSE
     Indication: CONSTIPATION
     Dosage: 30 MILLIGRAM DAILY;
     Route: 048
  5. FENTANYL CITRATE. [Concomitant]
     Active Substance: FENTANYL CITRATE
     Indication: CANCER PAIN
     Dosage: 9 MILLIGRAM DAILY;
     Route: 062
     Dates: start: 20141007
  6. ACETAMINOPHEN. [Concomitant]
     Active Substance: ACETAMINOPHEN
     Indication: CANCER PAIN
     Dosage: 2400 MILLIGRAM DAILY;
     Route: 048
  7. LAXOBERON [Concomitant]
     Active Substance: SODIUM PICOSULFATE
     Indication: CONSTIPATION
     Route: 048
  8. E-FEN BUCCAL [Suspect]
     Active Substance: FENTANYL CITRATE
     Dosage: DAILY DOSE 200-800 UG
     Route: 002
     Dates: start: 20141007, end: 20141016
  9. FENTANYL CITRATE. [Concomitant]
     Active Substance: FENTANYL CITRATE
     Dosage: 12 MILLIGRAM DAILY;
     Route: 062
     Dates: start: 20141010, end: 20141106
  10. MORPHINE HYDROCHLORIDE HYDRATE [Concomitant]
     Active Substance: MORPHINE HYDROCHLORIDE
     Indication: BREAKTHROUGH PAIN
     Dosage: 8.3 MILLIGRAM DAILY;
     Route: 042
     Dates: start: 20141003, end: 20141008
  11. MORPHINE HYDROCHLORIDE HYDRATE [Concomitant]
     Active Substance: MORPHINE HYDROCHLORIDE
     Dosage: 50 MILLIGRAM DAILY;
     Route: 042
     Dates: start: 20141016, end: 20141028
  12. TAKEPRON [Concomitant]
     Active Substance: LANSOPRAZOLE
     Indication: PROPHYLAXIS AGAINST GASTROINTESTINAL ULCER
     Dosage: 15 MILLIGRAM DAILY;
     Route: 048
  13. FENTANYL CITRATE. [Concomitant]
     Active Substance: FENTANYL CITRATE
     Dosage: 13 MILLIGRAM DAILY;
     Route: 062
     Dates: start: 20141008, end: 20141009
  14. MORPHINE HYDROCHLORIDE HYDRATE [Concomitant]
     Active Substance: MORPHINE HYDROCHLORIDE
     Dosage: 60 MILLIGRAM DAILY;
     Route: 048
     Dates: start: 20141009, end: 20141016

REACTIONS (4)
  - Vomiting [Not Recovered/Not Resolved]
  - Delirium [Recovered/Resolved]
  - Nausea [Not Recovered/Not Resolved]
  - Oropharyngeal cancer [Fatal]

NARRATIVE: CASE EVENT DATE: 20141007
